APPROVED DRUG PRODUCT: POTIGA
Active Ingredient: EZOGABINE
Strength: 400MG
Dosage Form/Route: TABLET;ORAL
Application: N022345 | Product #004
Applicant: GLAXOSMITHKLINE
Approved: Jun 10, 2011 | RLD: Yes | RS: No | Type: DISCN